FAERS Safety Report 20583022 (Version 1)
Quarter: 2022Q1

REPORT INFORMATION
  Report Type: Spontaneous
  Country: None (occurrence: GB)
  Receive Date: 20220311
  Receipt Date: 20220311
  Transmission Date: 20220423
  Serious: Yes (Death, Hospitalization, Other)
  Sender: FDA-Public Use
  Company Number: GB-Breckenridge Pharmaceutical, Inc.-2126670

PATIENT
  Age: 88 Year
  Sex: Male

DRUGS (8)
  1. UNSPECIFIED INGREDIENT [Suspect]
     Active Substance: UNSPECIFIED INGREDIENT
  2. ASPIRIN [Concomitant]
     Active Substance: ASPIRIN
  3. ATORVASTATIN CALCIUM [Concomitant]
     Active Substance: ATORVASTATIN CALCIUM
  4. NITROGLYCERIN [Concomitant]
     Active Substance: NITROGLYCERIN
  5. BISOPROLOL. [Concomitant]
     Active Substance: BISOPROLOL FUMARATE
  6. ISOSORBIDE MONONITRATE [Concomitant]
     Active Substance: ISOSORBIDE MONONITRATE
  7. FUROSEMIDE [Concomitant]
     Active Substance: FUROSEMIDE
  8. AMLODIPINE [Concomitant]
     Active Substance: AMLODIPINE BESYLATE

REACTIONS (7)
  - Hypocalcaemia [Fatal]
  - Hypomagnesaemia [Fatal]
  - Hypokalaemia [Fatal]
  - Fall [Fatal]
  - Product monitoring error [Fatal]
  - Overdose [Fatal]
  - Pseudomonal sepsis [Fatal]
